FAERS Safety Report 8103416-5 (Version None)
Quarter: 2012Q1

REPORT INFORMATION
  Report Type: 
  Country: None (occurrence: None)
  Receive Date: 20120130
  Receipt Date: 20120117
  Transmission Date: 20120608
  Serious: Yes (Hospitalization)
  Sender: FDA-Public Use
  Company Number: DE-UCBSA-050281

PATIENT
  Age: 49 Year
  Sex: Female

DRUGS (2)
  1. KEPPRA [Suspect]
     Dosage: 750 MG 2 TABLETS, TOTAL AMOUNT 1500 MG
     Route: 048
  2. OXCARBAZEPINE [Suspect]
     Dosage: TOTAL AMOUNT: 900 MG
     Route: 048

REACTIONS (1)
  - MULTIPLE DRUG OVERDOSE ACCIDENTAL [None]
